FAERS Safety Report 5351474-3 (Version None)
Quarter: 2007Q2

REPORT INFORMATION
  Report Type: 
  Country: None (occurrence: None)
  Receive Date: 20070521
  Receipt Date: 20070307
  Transmission Date: 20071010
  Serious: No
  Sender: FDA-Public Use
  Company Number: WAES 0701USA00777

PATIENT
  Age: 58 Year
  Sex: Female
  Weight: 68.0396 kg

DRUGS (9)
  1. JANUVIA [Suspect]
     Indication: DIABETES MELLITUS NON-INSULIN-DEPENDENT
     Dosage: 100 MG/DAILY;PO
     Route: 048
     Dates: start: 20061201
  2. AMARYL [Concomitant]
  3. CADUET [Concomitant]
  4. PROTONIX [Concomitant]
  5. SYNTHROID [Concomitant]
  6. TRICOR [Concomitant]
  7. ATENOLOL [Concomitant]
  8. CYANOCOBALAMIN [Concomitant]
  9. METFORMIN [Concomitant]

REACTIONS (3)
  - BLOOD GLUCOSE FLUCTUATION [None]
  - HYPOGLYCAEMIA [None]
  - SCIATICA [None]
